FAERS Safety Report 4337494-6 (Version None)
Quarter: 2004Q2

REPORT INFORMATION
  Report Type: 
  Country: None (occurrence: None)
  Receive Date: 20040413
  Receipt Date: 20040401
  Transmission Date: 20050107
  Serious: Yes (Death)
  Sender: FDA-Public Use
  Company Number: GB-BRISTOL-MYERS SQUIBB COMPANY-12556262

PATIENT

DRUGS (3)
  1. DIDANOSINE [Suspect]
     Dosage: INITIATED AT 24 WEEKS GESTATION.
     Route: 064
  2. NEVIRAPINE [Suspect]
     Dosage: INITIATED AT 22 WEEKS GESTATION.
     Route: 064
  3. ZIDOVUDINE [Suspect]
     Dosage: INITIATED AT 24 WEEKS GESTATION.
     Route: 064

REACTIONS (2)
  - MATERNAL DRUGS AFFECTING FOETUS [None]
  - SUDDEN INFANT DEATH SYNDROME [None]
